FAERS Safety Report 4840155-8 (Version None)
Quarter: 2005Q4

REPORT INFORMATION
  Report Type: 
  Country: None (occurrence: None)
  Receive Date: 20051125
  Receipt Date: 20051111
  Transmission Date: 20060501
  Serious: Yes (Other)
  Sender: FDA-Public Use
  Company Number: 2005154511

PATIENT
  Age: 24 Year
  Sex: Male
  Weight: 64.4108 kg

DRUGS (2)
  1. BENADRYL [Suspect]
     Indication: MULTIPLE ALLERGIES
     Dosage: 2-8 ULTRATABS DAILY, ORAL
     Route: 048
     Dates: start: 20050601
  2. ANACIN (ACETYLSALICYLIC ACID, CAFFEINE) [Suspect]
     Indication: SOMNOLENCE
     Dosage: 400 MG DAILY, ORAL
     Route: 048

REACTIONS (5)
  - DRUG DEPENDENCE [None]
  - FEELING ABNORMAL [None]
  - RASH ERYTHEMATOUS [None]
  - RASH PAPULAR [None]
  - SOMNOLENCE [None]
